FAERS Safety Report 20752514 (Version 1)
Quarter: 2022Q2

REPORT INFORMATION
  Report Type: Spontaneous
  Country: US (occurrence: None)
  Receive Date: 20220426
  Receipt Date: 20220426
  Transmission Date: 20220721
  Serious: No
  Sender: FDA-Public Use
  Company Number: US-ROCHE-2879013

PATIENT
  Sex: Male
  Weight: 111.23 kg

DRUGS (2)
  1. ESBRIET [Suspect]
     Active Substance: PIRFENIDONE
     Indication: Idiopathic pulmonary fibrosis
     Dosage: 9 PILLS A DAY ;ONGOING: YES
     Route: 048
     Dates: start: 202103
  2. DIAZEPAM [Suspect]
     Active Substance: DIAZEPAM
     Indication: Product used for unknown indication
     Dosage: ONGOING: YES
     Route: 065

REACTIONS (6)
  - Upper respiratory tract infection [Unknown]
  - Sinusitis [Unknown]
  - Head discomfort [Unknown]
  - Weight increased [Unknown]
  - Infection [Unknown]
  - Musculoskeletal discomfort [Unknown]
